FAERS Safety Report 15945479 (Version 7)
Quarter: 2019Q4

REPORT INFORMATION
  Report Type: Spontaneous
  Country: JP (occurrence: JP)
  Receive Date: 20190211
  Receipt Date: 20191226
  Transmission Date: 20200122
  Serious: Yes (Life-Threatening, Hospitalization)
  Sender: FDA-Public Use
  Company Number: JP-ROCHE-2262657

PATIENT
  Age: 52 Year
  Sex: Female
  Weight: 48 kg

DRUGS (16)
  1. FLOMOX [CEFCAPENE PIVOXIL HYDROCHLORIDE] [Suspect]
     Active Substance: CEFCAPENE PIVOXIL HYDROCHLORIDE
     Indication: TONSILLITIS
     Route: 048
     Dates: start: 20190130, end: 20190131
  2. CALONAL [Suspect]
     Active Substance: ACETAMINOPHEN
     Indication: INFLUENZA
     Route: 048
     Dates: start: 20190131, end: 20190131
  3. EBASTINE [Concomitant]
     Active Substance: EBASTINE
     Indication: TONSILLITIS
     Route: 048
     Dates: start: 20190130, end: 20190130
  4. FLUVOXAMINE MALEATE. [Concomitant]
     Active Substance: FLUVOXAMINE MALEATE
  5. PRANOPROFEN [Concomitant]
     Active Substance: PRANOPROFEN
  6. XOFLUZA [Suspect]
     Active Substance: BALOXAVIR MARBOXIL
     Indication: INFLUENZA
     Route: 048
     Dates: start: 20190131, end: 20190131
  7. LOXONIN [Concomitant]
     Active Substance: LOXOPROFEN SODIUM
     Indication: TONSILLITIS
     Route: 048
     Dates: start: 20190130, end: 20190131
  8. LOXOPROFEN SODIUM HYDRATE [Concomitant]
     Active Substance: LOXOPROFEN SODIUM DIHYDRATE
  9. MAOTO [Suspect]
     Active Substance: HERBALS
     Indication: INFLUENZA
     Route: 048
     Dates: start: 20190131, end: 20190131
  10. FLUVOXAMINE MALEATE. [Concomitant]
     Active Substance: FLUVOXAMINE MALEATE
     Indication: PANIC DISORDER
     Dosage: 150 MG/DAY
     Route: 048
  11. REBAMIPIDE [Concomitant]
     Active Substance: REBAMIPIDE
     Indication: TONSILLITIS
     Route: 048
     Dates: start: 20190130, end: 20190131
  12. AZUNOL [SODIUM GUALENATE] [Concomitant]
     Active Substance: SODIUM GUALENATE
     Indication: TONSILLITIS
     Route: 065
     Dates: start: 20190130, end: 20190131
  13. POVIDONE-IODINE. [Concomitant]
     Active Substance: POVIDONE-IODINE
     Indication: TONSILLITIS
     Dosage: OP ROUTE OF ADMINISTRATION
     Route: 065
     Dates: start: 20190130, end: 20190131
  14. NIFLAN [Concomitant]
     Active Substance: PRANOPROFEN
     Indication: TONSILLITIS
     Route: 048
     Dates: start: 20190130, end: 20190130
  15. EBASTINE [Concomitant]
     Active Substance: EBASTINE
  16. REBAMIPIDE [Concomitant]
     Active Substance: REBAMIPIDE

REACTIONS (4)
  - Prescribed underdose [Unknown]
  - Acute hepatic failure [Recovered/Resolved]
  - Acute kidney injury [Recovered/Resolved]
  - Haemorrhagic diathesis [Recovered/Resolved]

NARRATIVE: CASE EVENT DATE: 20190202
